FAERS Safety Report 4886320-5 (Version None)
Quarter: 2006Q1

REPORT INFORMATION
  Report Type: 
  Country: None (occurrence: None)
  Receive Date: 20060120
  Receipt Date: 20031031
  Transmission Date: 20060701
  Serious: Yes (Hospitalization, Disabling)
  Sender: FDA-Public Use
  Company Number: US-MERCK-0310USA03464

PATIENT
  Age: 56 Year
  Sex: Female
  Weight: 63 kg

DRUGS (11)
  1. VIOXX [Suspect]
     Indication: ARTHRITIS
     Route: 048
     Dates: start: 19990101, end: 20011102
  2. PREMARIN [Concomitant]
     Route: 065
  3. VITAMIN D (UNSPECIFIED) [Concomitant]
     Route: 065
  4. POTASSIUM (UNSPECIFIED) [Concomitant]
     Route: 065
  5. CYTOMEL [Concomitant]
     Route: 065
  6. CYANOCOBALAMIN [Concomitant]
     Route: 065
  7. FOSAMAX [Concomitant]
     Route: 048
  8. DARVOCET-N 50 [Concomitant]
     Route: 065
  9. CLEOCIN [Concomitant]
     Route: 065
  10. CREON [Concomitant]
     Route: 065
  11. ASPIRIN [Concomitant]
     Route: 065

REACTIONS (27)
  - ACUTE SINUSITIS [None]
  - BACK DISORDER [None]
  - BALANCE DISORDER [None]
  - CARDIAC FLUTTER [None]
  - CEREBROVASCULAR ACCIDENT [None]
  - CERUMEN IMPACTION [None]
  - CONFUSIONAL STATE [None]
  - CORONARY ARTERY DISEASE [None]
  - DIZZINESS [None]
  - ELECTROCARDIOGRAM ST SEGMENT DEPRESSION [None]
  - FAECAL INCONTINENCE [None]
  - FALL [None]
  - FINGER DEFORMITY [None]
  - HYPERKERATOSIS [None]
  - HYPERTONIC BLADDER [None]
  - HYPOKALAEMIA [None]
  - MALABSORPTION [None]
  - MEMORY IMPAIRMENT [None]
  - MITRAL VALVE PROLAPSE [None]
  - PAIN IN EXTREMITY [None]
  - PARAESTHESIA [None]
  - RECTOCELE REPAIR [None]
  - TRANSIENT ISCHAEMIC ATTACK [None]
  - URINARY TRACT INFECTION [None]
  - VENTRICULAR EXTRASYSTOLES [None]
  - VERTIGO [None]
  - VISION BLURRED [None]
